FAERS Safety Report 6571047-4 (Version None)
Quarter: 2010Q1

REPORT INFORMATION
  Report Type: 
  Country: None (occurrence: None)
  Receive Date: 20100204
  Receipt Date: 20100120
  Transmission Date: 20100710
  Serious: Yes (Hospitalization)
  Sender: FDA-Public Use
  Company Number: US-ELI_LILLY_AND_COMPANY-US200910006564

PATIENT
  Sex: Female

DRUGS (6)
  1. EVISTA [Suspect]
     Dosage: 6 MG, DAILY (1/D)
     Route: 065
     Dates: start: 19940101
  2. FORTEO [Suspect]
     Indication: OSTEOPOROSIS
     Dosage: 20 UG, DAILY (1/D)
     Dates: start: 20090401
  3. CALCIUM [Concomitant]
     Dosage: UNK, UNKNOWN
     Route: 065
  4. VITAMIN D [Concomitant]
     Dosage: 5000 MG, UNK
  5. FISH OIL [Concomitant]
  6. LUCENTIS [Concomitant]
     Indication: MACULAR DEGENERATION
     Route: 001

REACTIONS (11)
  - AMNESIA [None]
  - BACK PAIN [None]
  - DRUG INEFFECTIVE [None]
  - FEELING ABNORMAL [None]
  - LACRIMATION INCREASED [None]
  - MACULAR DEGENERATION [None]
  - NAUSEA [None]
  - OSTEOPOROSIS [None]
  - RHINORRHOEA [None]
  - SPINAL COMPRESSION FRACTURE [None]
  - VISUAL ACUITY REDUCED [None]
